FAERS Safety Report 8494704-1 (Version None)
Quarter: 2012Q3

REPORT INFORMATION
  Report Type: 
  Country: None (occurrence: None)
  Receive Date: 20120709
  Receipt Date: 20120629
  Transmission Date: 20120928
  Serious: Yes (Other)
  Sender: FDA-Public Use
  Company Number: BR-JNJFOC-20120700566

PATIENT
  Sex: Male
  Weight: 64.4 kg

DRUGS (5)
  1. PENTASA [Concomitant]
     Dosage: FOR ONE YEAR AND A HALF
     Route: 065
  2. AZATHIOPRINE [Concomitant]
     Route: 065
     Dates: start: 20111101
  3. PREDNISONE [Concomitant]
     Indication: PROCTOCOLITIS
     Route: 065
  4. OMEPRAZOLE [Concomitant]
     Dosage: FOR 3 YEARS
     Route: 065
     Dates: start: 20090101
  5. REMICADE [Suspect]
     Indication: PROCTOCOLITIS
     Route: 042
     Dates: start: 20120101

REACTIONS (4)
  - DIARRHOEA [None]
  - ASTHENIA [None]
  - WEIGHT INCREASED [None]
  - DYSKINESIA [None]
